FAERS Safety Report 5244525-8 (Version None)
Quarter: 2007Q1

REPORT INFORMATION
  Report Type: 
  Country: None (occurrence: None)
  Receive Date: 20070222
  Receipt Date: 20070209
  Transmission Date: 20070707
  Serious: Yes (Other)
  Sender: FDA-Public Use
  Company Number: US-ELI_LILLY_AND_COMPANY-US200702001981

PATIENT
  Age: 31 Year
  Sex: Female

DRUGS (5)
  1. CYMBALTA [Suspect]
     Dosage: 30 MG, UNK
     Dates: start: 20060104, end: 20060801
  2. CYMBALTA [Suspect]
     Dosage: 60 MG, UNK
     Dates: start: 20060801, end: 20070208
  3. TRAZODONE HCL [Concomitant]
     Dosage: 100 MG, EACH EVENING
  4. LITHIUM CARBONATE [Concomitant]
     Dosage: 300 MG, 2/D
  5. PZC [Concomitant]
     Dosage: UNK, UNK

REACTIONS (3)
  - CHOLECYSTECTOMY [None]
  - HEPATIC ENZYME INCREASED [None]
  - HEPATIC STEATOSIS [None]
